FAERS Safety Report 5213135-0 (Version None)
Quarter: 2007Q1

REPORT INFORMATION
  Report Type: 
  Country: None (occurrence: None)
  Receive Date: 20070116
  Receipt Date: 20070105
  Transmission Date: 20070707
  Serious: Yes (Other)
  Sender: FDA-Public Use
  Company Number: 234710

PATIENT
  Sex: Female

DRUGS (3)
  1. RITUXAN [Suspect]
     Indication: SYSTEMIC LUPUS ERYTHEMATOSUS
  2. PREDNISONE TAB [Concomitant]
  3. CYCLOPHOSPHAMIDE [Concomitant]

REACTIONS (4)
  - ASPERGILLOSIS [None]
  - CEREBRAL ASPERGILLOSIS [None]
  - IMMUNOSUPPRESSION [None]
  - RENAL DISORDER [None]
